FAERS Safety Report 12915940 (Version 6)
Quarter: 2018Q2

REPORT INFORMATION
  Report Type: Spontaneous
  Country: JP (occurrence: JP)
  Receive Date: 20161104
  Receipt Date: 20180405
  Transmission Date: 20180711
  Serious: Yes (Other)
  Sender: FDA-Public Use
  Company Number: JP-GILEAD-2016-0228635

PATIENT
  Age: 80 Year
  Sex: Female

DRUGS (7)
  1. ALFACALCIDOL [Concomitant]
     Active Substance: ALFACALCIDOL
     Dosage: 0.25 ?G, QD
     Dates: start: 20160408
  2. BARACLUDE [Concomitant]
     Active Substance: ENTECAVIR
     Dosage: UNK
     Dates: start: 20110112
  3. TENOFOVIR DISOPROXIL FUMARATE. [Suspect]
     Active Substance: TENOFOVIR DISOPROXIL FUMARATE
     Dosage: 300 MG, QOD
     Route: 048
     Dates: start: 20160811, end: 20170728
  4. URSO [Concomitant]
     Active Substance: URSODIOL
     Dosage: UNK
  5. BARACLUDE [Concomitant]
     Active Substance: ENTECAVIR
     Indication: HEPATITIS B
     Dosage: UNK
     Route: 065
     Dates: start: 201101
  6. URSO [Concomitant]
     Active Substance: URSODIOL
     Dosage: UNK
  7. TENOFOVIR DISOPROXIL FUMARATE. [Suspect]
     Active Substance: TENOFOVIR DISOPROXIL FUMARATE
     Indication: HEPATITIS B
     Dosage: 300 MG, QD
     Route: 048
     Dates: start: 20150612, end: 20160810

REACTIONS (8)
  - Bone pain [Unknown]
  - Bone density decreased [Recovered/Resolved]
  - Renal tubular disorder [Not Recovered/Not Resolved]
  - Pain in extremity [Unknown]
  - Foot fracture [Recovered/Resolved]
  - Renal impairment [Recovered/Resolved]
  - Blood phosphorus decreased [Recovering/Resolving]
  - Gait disturbance [Unknown]

NARRATIVE: CASE EVENT DATE: 20160318
